FAERS Safety Report 7086628-1 (Version None)
Quarter: 2010Q4

REPORT INFORMATION
  Report Type: 
  Country: None (occurrence: None)
  Receive Date: 20101105
  Receipt Date: 20101028
  Transmission Date: 20110411
  Serious: Yes (Other)
  Sender: FDA-Public Use
  Company Number: CHPA2010CA16949

PATIENT
  Sex: Female

DRUGS (1)
  1. EX-LAX 15MG PILLS (NCH) [Suspect]
     Indication: LAXATIVE SUPPORTIVE CARE
     Dosage: UNK, QN (^NIGHTLY SINCE MANY YEARS^)
     Route: 048

REACTIONS (2)
  - DRUG DEPENDENCE [None]
  - INTENTIONAL DRUG MISUSE [None]
